FAERS Safety Report 11400102 (Version 2)
Quarter: 2015Q3

REPORT INFORMATION
  Report Type: Spontaneous
  Country: US (occurrence: US)
  Receive Date: 20150820
  Receipt Date: 20150902
  Transmission Date: 20151125
  Serious: Yes (Disabling, Other)
  Sender: FDA-Public Use
  Company Number: US-BAYER-2015-400922

PATIENT
  Sex: Female

DRUGS (1)
  1. BETASERON [Suspect]
     Active Substance: INTERFERON BETA-1B
     Indication: MULTIPLE SCLEROSIS
     Dosage: UNK
     Dates: start: 1998

REACTIONS (9)
  - Multiple sclerosis relapse [None]
  - Paraesthesia [None]
  - Injection site mass [Not Recovered/Not Resolved]
  - Optic neuritis [Not Recovered/Not Resolved]
  - Blindness [Not Recovered/Not Resolved]
  - Optic neuritis [None]
  - Hypoaesthesia [None]
  - Migraine [None]
  - Aphasia [None]

NARRATIVE: CASE EVENT DATE: 2004
